FAERS Safety Report 21698452 (Version 1)
Quarter: 2022Q4

REPORT INFORMATION
  Report Type: Report from Study
  Country: US (occurrence: US)
  Receive Date: 20221208
  Receipt Date: 20221208
  Transmission Date: 20230113
  Serious: No
  Sender: FDA-Public Use
  Company Number: US-ABBVIE-4178658

PATIENT
  Age: 24 Year
  Sex: Female

DRUGS (3)
  1. HUMIRA [Suspect]
     Active Substance: ADALIMUMAB
     Indication: Hidradenitis
     Dosage: FORM STRENGTH 80 MILLIGRAM
     Route: 058
     Dates: start: 20211022
  2. HUMIRA [Suspect]
     Active Substance: ADALIMUMAB
     Dosage: DAY 1, 1 IN ONCE
     Route: 058
     Dates: start: 20210924, end: 20210924
  3. HUMIRA [Suspect]
     Active Substance: ADALIMUMAB
     Dosage: DAY 15, 1 IN ONCE
     Route: 058
     Dates: start: 20211008, end: 20211008

REACTIONS (2)
  - Self-consciousness [Unknown]
  - Skin disorder [Unknown]

NARRATIVE: CASE EVENT DATE: 20220901
